FAERS Safety Report 12309306 (Version 1)
Quarter: 2016Q2

REPORT INFORMATION
  Report Type: Spontaneous
  Country: US (occurrence: None)
  Receive Date: 20160426
  Receipt Date: 20160426
  Transmission Date: 20160815
  Serious: No
  Sender: FDA-Public Use
  Company Number: None

PATIENT
  Sex: Female

DRUGS (4)
  1. METFORMIN [Suspect]
     Active Substance: METFORMIN HYDROCHLORIDE
  2. GLIMEPIRIDE. [Suspect]
     Active Substance: GLIMEPIRIDE
  3. JANUVIA [Suspect]
     Active Substance: SITAGLIPTIN PHOSPHATE
  4. TOUJEO [Suspect]
     Active Substance: INSULIN GLARGINE

REACTIONS (6)
  - Fatigue [None]
  - Glycosylated haemoglobin increased [None]
  - Hernia [None]
  - Medication error [None]
  - Blood glucose decreased [None]
  - Malaise [None]
